FAERS Safety Report 9526960 (Version 3)
Quarter: 2017Q4

REPORT INFORMATION
  Report Type: Spontaneous
  Country: US (occurrence: US)
  Receive Date: 20130916
  Receipt Date: 20171026
  Transmission Date: 20180321
  Serious: No
  Sender: FDA-Public Use
  Company Number: US-ASTRAZENECA-2013SE37263

PATIENT
  Age: 739 Month
  Sex: Male
  Weight: 73.5 kg

DRUGS (14)
  1. ALBUTEROL. [Concomitant]
     Active Substance: ALBUTEROL
     Route: 055
  2. SYMBICORT [Suspect]
     Active Substance: BUDESONIDE\FORMOTEROL FUMARATE DIHYDRATE
     Indication: CHRONIC OBSTRUCTIVE PULMONARY DISEASE
     Dosage: 160 OVER 4.5, 2 PUFFS TWICE DAILY
     Route: 055
     Dates: start: 2006
  3. PROAIR HFA [Concomitant]
     Active Substance: ALBUTEROL SULFATE
     Indication: CHRONIC OBSTRUCTIVE PULMONARY DISEASE
     Dosage: AS REQUIRED EVERY 4 - 6 HOURS
     Route: 055
  4. ZOCOR [Concomitant]
     Active Substance: SIMVASTATIN
     Indication: BLOOD CHOLESTEROL ABNORMAL
     Route: 048
  5. PULMICORT FLEXHALER [Suspect]
     Active Substance: BUDESONIDE
     Route: 055
  6. RISPERDAL [Concomitant]
     Active Substance: RISPERIDONE
     Route: 030
  7. RISPERDAL [Concomitant]
     Active Substance: RISPERIDONE
     Dosage: 2 MG, ONCE IN MORNING AND ONCE AT NIGHT
     Route: 048
  8. RISPERDAL CONSTA [Concomitant]
     Active Substance: RISPERIDONE
     Route: 030
  9. SYMBICORT [Suspect]
     Active Substance: BUDESONIDE\FORMOTEROL FUMARATE DIHYDRATE
     Indication: CHRONIC OBSTRUCTIVE PULMONARY DISEASE
     Dosage: 160/4.5 MCG, 2 PUFFS TWO TIMES A DAY
     Route: 055
     Dates: start: 200703
  10. COGENTIN [Concomitant]
     Active Substance: BENZTROPINE MESYLATE
     Route: 048
  11. RISPERDAL [Concomitant]
     Active Substance: RISPERIDONE
     Route: 048
  12. THEOPHYLLINE [Concomitant]
     Active Substance: THEOPHYLLINE ANHYDROUS
     Indication: CHRONIC OBSTRUCTIVE PULMONARY DISEASE
     Dosage: 100.0MG EVERY 4 - 6 HOURS
     Route: 048
     Dates: start: 200703
  13. SPIRIVA [Concomitant]
     Active Substance: TIOTROPIUM BROMIDE MONOHYDRATE
     Indication: CHRONIC OBSTRUCTIVE PULMONARY DISEASE
     Route: 055
     Dates: start: 200703
  14. PROAIR HFA [Concomitant]
     Active Substance: ALBUTEROL SULFATE
     Indication: CHRONIC OBSTRUCTIVE PULMONARY DISEASE
     Dosage: 160.0UG EVERY 4 - 6 HOURS
     Route: 055
     Dates: start: 200703

REACTIONS (11)
  - Muscle spasms [Unknown]
  - Pneumonia [Unknown]
  - Discomfort [Unknown]
  - Dizziness postural [Unknown]
  - Pain in extremity [Unknown]
  - Arthritis [Unknown]
  - Underdose [Unknown]
  - Dyspnoea [Unknown]
  - Nasal congestion [Unknown]
  - Intentional product misuse [Unknown]
  - Drug dose omission [Unknown]

NARRATIVE: CASE EVENT DATE: 201505
